FAERS Safety Report 25553944 (Version 3)
Quarter: 2025Q3

REPORT INFORMATION
  Report Type: Report from Study
  Country: CA (occurrence: CA)
  Receive Date: 20250715
  Receipt Date: 20250728
  Transmission Date: 20251021
  Serious: Yes (Hospitalization, Other)
  Sender: SAMSUNG BIOEPIS
  Company Number: CA-SAMSUNG BIOEPIS-SB-2025-22546

PATIENT
  Age: 21 Year
  Sex: Male
  Weight: 63 kg

DRUGS (2)
  1. RENFLEXIS [Suspect]
     Active Substance: INFLIXIMAB-ABDA
     Indication: Crohn^s disease
     Dosage: 5 MG/KG WEEK 0, 2, 6 AND THEN EVERY 8 WEEKS THEREAFTER.
     Route: 042
     Dates: start: 20250623
  2. RENFLEXIS [Suspect]
     Active Substance: INFLIXIMAB-ABDA
     Dosage: INDUCTION WEEK 2;
     Route: 042
     Dates: start: 20250708

REACTIONS (22)
  - Pyrexia [Recovered/Resolved]
  - Fatigue [Unknown]
  - Oropharyngeal pain [Unknown]
  - Illness [Recovered/Resolved]
  - Peritonsillar abscess [Unknown]
  - Ketonuria [Recovering/Resolving]
  - Heart rate increased [Recovering/Resolving]
  - Back pain [Recovering/Resolving]
  - Neck pain [Recovering/Resolving]
  - Asthenia [Recovering/Resolving]
  - Infection [Recovering/Resolving]
  - White blood cell count abnormal [Recovering/Resolving]
  - Inflammatory marker increased [Recovering/Resolving]
  - Dyspnoea [Recovering/Resolving]
  - Pain [Unknown]
  - Discomfort [Unknown]
  - Pharyngitis [Unknown]
  - Viral infection [Unknown]
  - Headache [Unknown]
  - Lethargy [Unknown]
  - Decreased appetite [Unknown]
  - Oropharyngeal discomfort [Unknown]

NARRATIVE: CASE EVENT DATE: 20250624
